FAERS Safety Report 9746672 (Version 2)
Quarter: 2013Q4

REPORT INFORMATION
  Report Type: Report from Study
  Country: DE (occurrence: DE)
  Receive Date: 20131211
  Receipt Date: 20131211
  Transmission Date: 20140711
  Serious: Yes (Hospitalization, Other)
  Sender: FDA-Public Use
  Company Number: DE-ABBVIE-13P-062-1085691-00

PATIENT
  Age: 71 Year
  Sex: Male
  Weight: 74 kg

DRUGS (4)
  1. HUMIRA [Suspect]
     Indication: RHEUMATOID ARTHRITIS
     Route: 058
     Dates: start: 20040309, end: 20121123
  2. HUMIRA [Suspect]
     Route: 058
     Dates: start: 20121219
  3. MTX [Concomitant]
     Indication: PRODUCT USED FOR UNKNOWN INDICATION
  4. GLUCOCORTICOIDS [Concomitant]
     Indication: PRODUCT USED FOR UNKNOWN INDICATION

REACTIONS (6)
  - Haematuria [Unknown]
  - Escherichia urinary tract infection [Unknown]
  - Joint arthroplasty [Recovered/Resolved]
  - Bladder diverticulum [Unknown]
  - Infection [Unknown]
  - Osteoporosis [Not Recovered/Not Resolved]
